FAERS Safety Report 16935246 (Version 2)
Quarter: 2019Q4

REPORT INFORMATION
  Report Type: Spontaneous
  Country: US (occurrence: US)
  Receive Date: 20191018
  Receipt Date: 20191028
  Transmission Date: 20200122
  Serious: Yes (Hospitalization, Other)
  Sender: FDA-Public Use
  Company Number: US-009507513-1910USA007481

PATIENT
  Age: 89 Year
  Sex: Female

DRUGS (3)
  1. CARDIZEM [Suspect]
     Active Substance: DILTIAZEM HYDROCHLORIDE
     Dosage: 90 MILLIGRAM, Q12H
  2. PRINIVIL [Suspect]
     Active Substance: LISINOPRIL
     Dosage: 10 MILLIGRAM, DAILY
     Route: 048
  3. SOTALOL. [Suspect]
     Active Substance: SOTALOL
     Dosage: 40 MILLIGRAM, DAILY

REACTIONS (4)
  - Hyperkalaemia [Recovering/Resolving]
  - Renal failure [Not Recovered/Not Resolved]
  - Shock [Recovering/Resolving]
  - Bradycardia [Recovering/Resolving]
